FAERS Safety Report 17367484 (Version 2)
Quarter: 2020Q1

REPORT INFORMATION
  Report Type: Report from Study
  Country: None (occurrence: US)
  Receive Date: 20200204
  Receipt Date: 20200304
  Transmission Date: 20200409
  Serious: Yes (Death, Hospitalization)
  Sender: FDA-Public Use
  Company Number: US-ABBVIE-20K-163-3262329-00

PATIENT
  Age: 81 Year
  Sex: Male

DRUGS (1)
  1. HUMIRA [Suspect]
     Active Substance: ADALIMUMAB
     Indication: CROHN^S DISEASE
     Dosage: CITRATE FREE
     Route: 058
     Dates: start: 201802

REACTIONS (7)
  - Immunosuppression [Unknown]
  - Death [Fatal]
  - Arthralgia [Unknown]
  - Streptococcal infection [Unknown]
  - Cellulitis [Unknown]
  - Skin exfoliation [Unknown]
  - Dialysis [Unknown]

NARRATIVE: CASE EVENT DATE: 202001
